FAERS Safety Report 8097498-7 (Version None)
Quarter: 2012Q1

REPORT INFORMATION
  Report Type: 
  Country: None (occurrence: None)
  Receive Date: 20120129
  Receipt Date: 20120116
  Transmission Date: 20120608
  Serious: Yes (Other)
  Sender: FDA-Public Use
  Company Number: CA-BRISTOL-MYERS SQUIBB COMPANY-16351454

PATIENT
  Age: 57 Year
  Sex: Male

DRUGS (4)
  1. ATAZANAVIR [Suspect]
     Indication: HIV INFECTION
  2. LAMIVUDINE [Suspect]
     Indication: HIV INFECTION
  3. RITONAVIR [Suspect]
     Indication: HIV INFECTION
  4. ABACAVIR [Suspect]
     Indication: HIV INFECTION

REACTIONS (3)
  - CALCULUS URINARY [None]
  - RENAL FAILURE ACUTE [None]
  - PYELONEPHRITIS [None]
